FAERS Safety Report 10552143 (Version 1)
Quarter: 2014Q4

REPORT INFORMATION
  Report Type: Spontaneous
  Country: JP (occurrence: JP)
  Receive Date: 20141029
  Receipt Date: 20141029
  Transmission Date: 20150529
  Serious: Yes (Other)
  Sender: FDA-Public Use
  Company Number: JP-PFIZER INC-2014291183

PATIENT
  Age: 86 Year
  Sex: Female

DRUGS (2)
  1. LIPITOR [Suspect]
     Active Substance: ATORVASTATIN CALCIUM
     Dosage: 5 MG, UNK
     Route: 048
  2. LIPITOR [Suspect]
     Active Substance: ATORVASTATIN CALCIUM
     Dosage: 30 MG, DAILY
     Route: 048
     Dates: start: 201210

REACTIONS (4)
  - Blood potassium increased [Unknown]
  - Anaemia [Unknown]
  - Renal impairment [Unknown]
  - Blood cholesterol increased [Recovered/Resolved]
